FAERS Safety Report 15700238 (Version 1)
Quarter: 2018Q4

REPORT INFORMATION
  Report Type: Spontaneous
  Country: JP (occurrence: JP)
  Receive Date: 20181207
  Receipt Date: 20181207
  Transmission Date: 20190205
  Serious: Yes (Hospitalization, Other)
  Sender: FDA-Public Use
  Company Number: JP-009507513-1807JPN002952J

PATIENT
  Age: 4 Decade
  Sex: Male
  Weight: 79.99 kg

DRUGS (3)
  1. TANDOSPIRONE CITRATE [Concomitant]
     Active Substance: TANDOSPIRONE CITRATE
     Indication: DEPRESSION
     Dosage: 400 MG, UNK
     Route: 048
  2. REMERON [Suspect]
     Active Substance: MIRTAZAPINE
     Indication: DEPRESSION
     Dosage: 210 MILLIGRAM, QD
     Route: 048
  3. ZOPICLONE [Concomitant]
     Active Substance: ZOPICLONE
     Dosage: 37.5 MG, UNK
     Route: 048

REACTIONS (2)
  - Intentional overdose [Unknown]
  - Altered state of consciousness [Recovering/Resolving]
